FAERS Safety Report 23716085 (Version 1)
Quarter: 2024Q2

REPORT INFORMATION
  Report Type: Report from Study
  Country: CA (occurrence: CA)
  Receive Date: 20240408
  Receipt Date: 20240408
  Transmission Date: 20240715
  Serious: Yes (Other)
  Sender: FDA-Public Use
  Company Number: CA-BEH-2024170254

PATIENT
  Age: 44 Year
  Sex: Female
  Weight: 74.83 kg

DRUGS (4)
  1. HIZENTRA [Suspect]
     Active Substance: HUMAN IMMUNOGLOBULIN G
     Indication: Primary immunodeficiency syndrome
     Dosage: 8 G, QW
     Route: 058
     Dates: start: 20230123
  2. HIZENTRA [Suspect]
     Active Substance: HUMAN IMMUNOGLOBULIN G
     Dosage: 50 ML, TOT
     Route: 058
     Dates: start: 20240317, end: 20240317
  3. HIZENTRA [Suspect]
     Active Substance: HUMAN IMMUNOGLOBULIN G
     Dosage: 45 ML, TOT
     Route: 058
     Dates: start: 20240311, end: 20240311
  4. HIZENTRA [Suspect]
     Active Substance: HUMAN IMMUNOGLOBULIN G
     Dosage: 10 ML, TOT
     Route: 058
     Dates: start: 20240321, end: 20240321

REACTIONS (17)
  - Pulmonary embolism [Unknown]
  - Pruritus [Unknown]
  - Incorrect dose administered [Unknown]
  - Wrong technique in product usage process [Unknown]
  - Malabsorption from injection site [Unknown]
  - Infusion site mass [Unknown]
  - Infusion site swelling [Unknown]
  - Wrong technique in product usage process [Unknown]
  - Injection site bruising [Unknown]
  - Injection site swelling [Unknown]
  - Incorrect dose administered [Unknown]
  - Ill-defined disorder [Unknown]
  - Infusion site swelling [Unknown]
  - Rash [Unknown]
  - Pruritus [Unknown]
  - Incorrect drug administration rate [Unknown]
  - Product administered at inappropriate site [Unknown]

NARRATIVE: CASE EVENT DATE: 20240301
